FAERS Safety Report 20988750 (Version 1)
Quarter: 2022Q2

REPORT INFORMATION
  Report Type: Report from Study
  Country: CZ (occurrence: CZ)
  Receive Date: 20220621
  Receipt Date: 20220621
  Transmission Date: 20220721
  Serious: Yes (Other)
  Sender: FDA-Public Use
  Company Number: CZ-UCBSA-2022033877

PATIENT
  Age: 57 Year
  Sex: Female

DRUGS (2)
  1. CIMZIA [Suspect]
     Active Substance: CERTOLIZUMAB PEGOL
     Indication: Rheumatoid arthritis
     Dosage: 200 MILLIGRAM, EV 2 WEEKS(QOW)
     Route: 058
     Dates: start: 20200603, end: 20220504
  2. PAMYCON [Concomitant]
     Indication: Product used for unknown indication

REACTIONS (3)
  - COVID-19 [Recovering/Resolving]
  - Bronchitis [Recovering/Resolving]
  - Sinusitis [Recovering/Resolving]

NARRATIVE: CASE EVENT DATE: 20210506
